FAERS Safety Report 4836360-7 (Version None)
Quarter: 2005Q4

REPORT INFORMATION
  Report Type: 
  Country: None (occurrence: None)
  Receive Date: 20051123
  Receipt Date: 20051115
  Transmission Date: 20060501
  Serious: Yes (Life-Threatening)
  Sender: FDA-Public Use
  Company Number: NO-ROCHE-424935

PATIENT
  Age: 9 Year
  Sex: Male

DRUGS (1)
  1. ROCEPHALIN [Suspect]
     Indication: NEUROBORRELIOSIS
     Dosage: ROUTE REPORTED AS INJ.
     Route: 050
     Dates: start: 20051011, end: 20051012

REACTIONS (6)
  - ABDOMINAL PAIN UPPER [None]
  - ANURIA [None]
  - BACK PAIN [None]
  - HAEMATURIA [None]
  - NAUSEA [None]
  - VOMITING [None]
